FAERS Safety Report 21197878 (Version 2)
Quarter: 2022Q3

REPORT INFORMATION
  Report Type: Spontaneous
  Country: FR (occurrence: FR)
  Receive Date: 20220810
  Receipt Date: 20220912
  Transmission Date: 20221027
  Serious: No
  Sender: FDA-Public Use
  Company Number: FR-JNJFOC-20220800024

PATIENT

DRUGS (4)
  1. PREZISTA [Suspect]
     Active Substance: DARUNAVIR ETHANOLATE
     Indication: Product used for unknown indication
     Route: 048
  2. PREZISTA [Suspect]
     Active Substance: DARUNAVIR ETHANOLATE
  3. PREZISTA [Suspect]
     Active Substance: DARUNAVIR ETHANOLATE
     Indication: Product used for unknown indication
     Route: 048
  4. PREZISTA [Suspect]
     Active Substance: DARUNAVIR ETHANOLATE

REACTIONS (1)
  - Product packaging issue [Unknown]
